FAERS Safety Report 5379440-2 (Version None)
Quarter: 2007Q3

REPORT INFORMATION
  Report Type: 
  Country: None (occurrence: None)
  Receive Date: 20070703
  Receipt Date: 20070625
  Transmission Date: 20080115
  Serious: Yes (Other)
  Sender: FDA-Public Use
  Company Number: 07H-163-0312774-00

PATIENT
  Age: 2 Day
  Sex: Female
  Weight: 3 kg

DRUGS (7)
  1. PRECEDEX [Suspect]
     Indication: ANALGESIC THERAPY
     Dosage: SEE IMAGE
  2. PRECEDEX [Suspect]
     Indication: SEDATIVE THERAPY
     Dosage: SEE IMAGE
  3. FENTANYL CITRATE [Suspect]
     Indication: DRUG USE FOR UNKNOWN INDICATION
     Dosage: 2 MCG/ML, EPIDURAL INFUSION
     Route: 008
  4. SEVOFLURANE [Concomitant]
  5. NITROUS OXIDE (NITROUS OXIDE) [Concomitant]
  6. 0.25% BUPIVACAINE (BUPIVACAINE) [Concomitant]
  7. 0.1% ROPIVACAINE (ROPIVACAINE) [Concomitant]

REACTIONS (2)
  - BRADYCARDIA [None]
  - HYPOTHERMIA [None]
